FAERS Safety Report 11637817 (Version 1)
Quarter: 2015Q4

REPORT INFORMATION
  Report Type: Spontaneous
  Country: AR (occurrence: AR)
  Receive Date: 20151016
  Receipt Date: 20151016
  Transmission Date: 20160304
  Serious: Yes (Hospitalization)
  Sender: FDA-Public Use
  Company Number: AR-TAKEDA-2015TUS014212

PATIENT
  Age: 51 Year
  Sex: Male

DRUGS (2)
  1. APATRIX [Suspect]
     Active Substance: DEXLANSOPRAZOLE
     Indication: PRODUCT USED FOR UNKNOWN INDICATION
     Dosage: 60 MG, QD
     Route: 048
     Dates: start: 20150413
  2. APATRIX [Suspect]
     Active Substance: DEXLANSOPRAZOLE
     Dosage: 30 MG, QD
     Route: 048
     Dates: start: 20150713, end: 20151013

REACTIONS (3)
  - Hypocalcaemia [Unknown]
  - Hypokalaemia [Unknown]
  - Hypomagnesaemia [Unknown]
